FAERS Safety Report 16348758 (Version 2)
Quarter: 2019Q2

REPORT INFORMATION
  Report Type: Spontaneous
  Country: US (occurrence: US)
  Receive Date: 20190523
  Receipt Date: 20190606
  Transmission Date: 20190711
  Serious: Yes (Hospitalization, Other)
  Sender: FDA-Public Use
  Company Number: US-ACCORD-128446

PATIENT
  Age: 56 Year
  Sex: Male

DRUGS (6)
  1. QUETIAPINE/QUETIAPINE FUMARATE [Concomitant]
     Indication: PSYCHOTIC DISORDER
  2. MELATONIN [Concomitant]
     Active Substance: MELATONIN
     Indication: INSOMNIA
  3. CLOZAPINE. [Suspect]
     Active Substance: CLOZAPINE
     Indication: PSYCHOTIC DISORDER
     Dosage: AT BEDTIME (QHS), 75 MG, 100 MG, WITHDRAWN.
  4. ARIPIPRAZOLE. [Concomitant]
     Active Substance: ARIPIPRAZOLE
     Indication: PSYCHOTIC DISORDER
  5. PALIPERIDONE/PALIPERIDONE PALMITATE [Concomitant]
     Indication: PSYCHOTIC DISORDER
     Route: 048
  6. OLANZAPINE. [Concomitant]
     Active Substance: OLANZAPINE
     Indication: PSYCHOTIC DISORDER

REACTIONS (4)
  - Insomnia [Unknown]
  - Delirium [Recovered/Resolved]
  - Dysarthria [Recovered/Resolved]
  - Dry mouth [Unknown]
